FAERS Safety Report 9304216 (Version 3)
Quarter: 2013Q4

REPORT INFORMATION
  Report Type: Spontaneous
  Country: US (occurrence: US)
  Receive Date: 20130522
  Receipt Date: 20131218
  Transmission Date: 20140711
  Serious: Yes (Hospitalization, Disabling, Other)
  Sender: FDA-Public Use
  Company Number: US-009507513-1305USA010844

PATIENT
  Sex: Female
  Weight: 63.49 kg

DRUGS (1)
  1. NUVARING [Suspect]
     Indication: PRODUCT USED FOR UNKNOWN INDICATION
     Dosage: UNK
     Route: 067
     Dates: start: 2002, end: 2003

REACTIONS (9)
  - Cholecystectomy [Unknown]
  - Cerebrovascular accident [Unknown]
  - Maternal exposure before pregnancy [Unknown]
  - Hysterectomy [Unknown]
  - C-reactive protein increased [Unknown]
  - Ovarian cystectomy [Unknown]
  - Female sterilisation [Unknown]
  - Migraine [Unknown]
  - Gallbladder disorder [Unknown]
